FAERS Safety Report 6434742-3 (Version None)
Quarter: 2009Q4

REPORT INFORMATION
  Report Type: 
  Country: None (occurrence: None)
  Receive Date: 20091109
  Receipt Date: 20091109
  Transmission Date: 20100525
  Serious: No
  Sender: FDA-Public Use
  Company Number: None

PATIENT
  Age: 56 Year
  Sex: Female
  Weight: 105.6881 kg

DRUGS (1)
  1. NIASPAN [Suspect]
     Indication: BLOOD CHOLESTEROL
     Dosage: 1 1TIME
     Dates: start: 20090707, end: 20091011

REACTIONS (4)
  - ARTHRALGIA [None]
  - FLUID RETENTION [None]
  - GAIT DISTURBANCE [None]
  - JOINT SWELLING [None]
